FAERS Safety Report 6728596-5 (Version None)
Quarter: 2010Q2

REPORT INFORMATION
  Report Type: 
  Country: None (occurrence: None)
  Receive Date: 20100517
  Receipt Date: 20100505
  Transmission Date: 20101027
  Serious: Yes (Other)
  Sender: FDA-Public Use
  Company Number: GB-PFIZER INC-2010056922

PATIENT
  Age: 45 Year
  Sex: Male

DRUGS (3)
  1. LYRICA [Suspect]
     Dosage: UNK
     Dates: start: 20091201
  2. VENTOLIN [Concomitant]
     Indication: ASTHMA
     Dosage: UNK
  3. BECLOMETASONE [Concomitant]
     Indication: ASTHMA
     Dosage: UNK

REACTIONS (1)
  - LOWER RESPIRATORY TRACT INFECTION [None]
